FAERS Safety Report 8844463 (Version 1)
Quarter: 2012Q4

REPORT INFORMATION
  Report Type: Spontaneous
  Country: GB (occurrence: None)
  Receive Date: 20121012
  Receipt Date: 20121012
  Transmission Date: 20130627
  Serious: Yes (Other)
  Sender: FDA-Public Use
  Company Number: AUR-APL-2012-04344

PATIENT
  Age: 65 Year
  Sex: Female
  Weight: 83 kg

DRUGS (7)
  1. SIMVASTATIN (SIMVASTATIN) [Suspect]
     Indication: PREVENTION
     Route: 048
     Dates: start: 20120813, end: 20120920
  2. CALCICHEW (CALCIUM CARBONATE) [Concomitant]
  3. IBUPROFEN [Concomitant]
  4. LANSOPRAZOLE [Concomitant]
  5. NITROFURANTOIN [Concomitant]
  6. PARACETAMOL [Concomitant]
  7. RIZATRIPTAN [Concomitant]

REACTIONS (1)
  - Amnesia [None]
